FAERS Safety Report 7220249-2 (Version None)
Quarter: 2011Q1

REPORT INFORMATION
  Report Type: 
  Country: None (occurrence: None)
  Receive Date: 20110111
  Receipt Date: 20110105
  Transmission Date: 20110831
  Serious: Yes (Other)
  Sender: FDA-Public Use
  Company Number: US-B.I. PHARMACEUTICALS,INC./RIDGEFIELD-2011-BP-00283BP

PATIENT
  Age: 71 Year
  Sex: Male
  Weight: 61.2 kg

DRUGS (13)
  1. ATENOLOL [Concomitant]
     Indication: HYPERTENSION
  2. ALLOPURINOL [Concomitant]
     Indication: GOUT
  3. LIPITOR [Suspect]
     Indication: BLOOD CHOLESTEROL INCREASED
  4. OMEPRAZOLE [Concomitant]
  5. MEDICATION NOT FURTHER SPECIFIED [Concomitant]
     Indication: HYPERSENSITIVITY
  6. MEDICATION NOT FURTHER SPECIFIED [Concomitant]
     Indication: SINUS DISORDER
  7. LIPITOR [Suspect]
     Indication: CARDIAC DISORDER
     Dosage: 40 MG
     Route: 048
     Dates: start: 19990401
  8. MEDICATION NOT FURTHER SPECIFIED [Concomitant]
     Indication: BACK DISORDER
  9. GABAPENTIN [Suspect]
     Indication: RESTLESS LEGS SYNDROME
     Dates: start: 20090901, end: 20100501
  10. LISINOPRIL [Concomitant]
  11. MIRAPEX [Suspect]
     Indication: RESTLESS LEGS SYNDROME
     Dates: start: 20090901, end: 20100501
  12. ASPIRIN [Concomitant]
  13. OMEPRAZOLE [Concomitant]
     Indication: GASTROOESOPHAGEAL REFLUX DISEASE

REACTIONS (3)
  - DIZZINESS [None]
  - FALL [None]
  - SOMNOLENCE [None]
